FAERS Safety Report 14592212 (Version 1)
Quarter: 2018Q1

REPORT INFORMATION
  Report Type: Spontaneous
  Country: US (occurrence: US)
  Receive Date: 20180301
  Receipt Date: 20180301
  Transmission Date: 20180509
  Serious: Yes (Disabling, Other)
  Sender: FDA-Public Use
  Company Number: None

PATIENT
  Age: 68 Year
  Sex: Female
  Weight: 98.1 kg

DRUGS (15)
  1. METOPOROL [Concomitant]
  2. PRALUENT [Concomitant]
     Active Substance: ALIROCUMAB
  3. LISINOPRIL. [Concomitant]
     Active Substance: LISINOPRIL
  4. COQ10 [Concomitant]
     Active Substance: UBIDECARENONE
  5. MULTIVITAMIN [Concomitant]
     Active Substance: VITAMINS
  6. COLACE [Concomitant]
     Active Substance: DOCUSATE SODIUM
  7. PRALUENT [Suspect]
     Active Substance: ALIROCUMAB
     Indication: TYPE IIA HYPERLIPIDAEMIA
     Dosage: QUANTITY:75 INJECTION(S);OTHER FREQUENCY:2 INJ PER MONTH;?
     Route: 058
     Dates: end: 20180215
  8. LEVOTHYROXINE. [Concomitant]
     Active Substance: LEVOTHYROXINE
  9. LASIX [Concomitant]
     Active Substance: FUROSEMIDE
  10. ZOLPIDEM [Concomitant]
     Active Substance: ZOLPIDEM\ZOLPIDEM TARTRATE
  11. MIRALAX [Concomitant]
     Active Substance: POLYETHYLENE GLYCOL 3350
  12. LOW DOSE ASPIRIN [Concomitant]
     Active Substance: ASPIRIN
  13. EFFEXOR XR [Concomitant]
     Active Substance: VENLAFAXINE HYDROCHLORIDE
  14. CRESTOR [Concomitant]
     Active Substance: ROSUVASTATIN CALCIUM
  15. FLAXSEED [Concomitant]
     Active Substance: FLAX SEED

REACTIONS (4)
  - Weight increased [None]
  - Skin irritation [None]
  - Pruritus [None]
  - Blood glucose increased [None]
